FAERS Safety Report 14153294 (Version 1)
Quarter: 2017Q4

REPORT INFORMATION
  Report Type: Spontaneous
  Country: US (occurrence: US)
  Receive Date: 20171102
  Receipt Date: 20171102
  Transmission Date: 20180321
  Serious: No
  Sender: FDA-Public Use
  Company Number: US-SA-2017SA161355

PATIENT
  Age: 53 Year
  Sex: Male

DRUGS (10)
  1. SCOPOLAMINE [Concomitant]
     Active Substance: SCOPOLAMINE
     Route: 062
  2. METOPROLOL. [Concomitant]
     Active Substance: METOPROLOL
  3. FLECAINIDE [Concomitant]
     Active Substance: FLECAINIDE
  4. DEXILANT [Concomitant]
     Active Substance: DEXLANSOPRAZOLE
  5. CHLORDIAZEPOXIDE HYDROCHLORIDE/CLIDINIUM BROMIDE [Concomitant]
  6. ALIROCUMAB PREFILLED PEN [Suspect]
     Active Substance: ALIROCUMAB
     Indication: BLOOD CHOLESTEROL
     Dates: start: 201510, end: 20170825
  7. LOVAZA [Concomitant]
     Active Substance: OMEGA-3-ACID ETHYL ESTERS
  8. FLUTICASONE. [Concomitant]
     Active Substance: FLUTICASONE
  9. PRALUENT [Suspect]
     Active Substance: ALIROCUMAB
     Indication: BLOOD CHOLESTEROL
     Route: 058
     Dates: start: 201510, end: 20170825
  10. XOLAIR [Concomitant]
     Active Substance: OMALIZUMAB

REACTIONS (5)
  - Burning sensation [Recovering/Resolving]
  - Blood triglycerides increased [Not Recovered/Not Resolved]
  - Paraesthesia [Recovering/Resolving]
  - Pain in extremity [Recovering/Resolving]
  - Neuropathy peripheral [Recovering/Resolving]

NARRATIVE: CASE EVENT DATE: 2017
